FAERS Safety Report 22138969 (Version 1)
Quarter: 2023Q1

REPORT INFORMATION
  Report Type: Report from Study
  Country: GB (occurrence: GB)
  Receive Date: 20230327
  Receipt Date: 20230327
  Transmission Date: 20230417
  Serious: Yes (Other)
  Sender: FDA-Public Use
  Company Number: GB-CELLTRION INC.-2023GB006017

PATIENT

DRUGS (7)
  1. BEVACIZUMAB [Suspect]
     Active Substance: BEVACIZUMAB
     Indication: Hepatocellular carcinoma
     Dosage: 1300 MG
     Route: 042
     Dates: start: 20220329
  2. ATEZOLIZUMAB [Suspect]
     Active Substance: ATEZOLIZUMAB
     Indication: Hepatocellular carcinoma
     Dosage: 1200 MG, EVERY 3 WEEKS, DOSE LAST STUDY DRUG ADMIN PRIOR AE IS 1200 MGDOSE LAST STUDY DRUG ADMIN PRI
     Route: 042
     Dates: start: 20220329
  3. AMLODIPINE [Concomitant]
     Active Substance: AMLODIPINE BESYLATE
     Dosage: DOSE: 1, QD
     Dates: start: 20210321
  4. ATORVASTATIN [Concomitant]
     Active Substance: ATORVASTATIN
     Dosage: DOSE: 1, QD
     Dates: start: 20120321
  5. CARVEDILOL [Concomitant]
     Active Substance: CARVEDILOL
     Dosage: DOSE: 1, QD
  6. DOXAZOSIN [Concomitant]
     Active Substance: DOXAZOSIN MESYLATE
     Dosage: DOSE: 2, QD
     Dates: start: 2012
  7. IRBESARTAN [Concomitant]
     Active Substance: IRBESARTAN
     Dosage: DOSE:1, QD
     Dates: start: 20120321

REACTIONS (4)
  - Thrombocytopenia [Recovered/Resolved]
  - Haematuria [Not Recovered/Not Resolved]
  - Proteinuria [Not Recovered/Not Resolved]
  - Off label use [Unknown]

NARRATIVE: CASE EVENT DATE: 20220510
